FAERS Safety Report 8227874-0 (Version None)
Quarter: 2012Q1

REPORT INFORMATION
  Report Type: 
  Country: None (occurrence: None)
  Receive Date: 20120322
  Receipt Date: 20120314
  Transmission Date: 20120608
  Serious: No
  Sender: FDA-Public Use
  Company Number: US-BAYER-2012-026690

PATIENT
  Age: 81 Year
  Sex: Male
  Weight: 77 kg

DRUGS (7)
  1. LOVASTATIN [Concomitant]
  2. ASPIRIN [Concomitant]
  3. ALEVE (CAPLET) [Suspect]
     Dosage: 1 TAB TWICE DAILY
     Route: 048
     Dates: start: 19940101
  4. COZAAR [Concomitant]
  5. FISH OIL [Concomitant]
  6. TOPROL-XL [Concomitant]
  7. OMEPRAZOLE [Concomitant]

REACTIONS (1)
  - NO ADVERSE EVENT [None]
